FAERS Safety Report 24076251 (Version 2)
Quarter: 2024Q4

REPORT INFORMATION
  Report Type: Report from Study
  Country: US (occurrence: US)
  Receive Date: 20240711
  Receipt Date: 20241205
  Transmission Date: 20250114
  Serious: Yes (Hospitalization)
  Sender: AMNEAL
  Company Number: US-AMNEAL PHARMACEUTICALS-2024-AMRX-02489

PATIENT
  Sex: Male

DRUGS (1)
  1. CARBIDOPA\LEVODOPA [Suspect]
     Active Substance: CARBIDOPA\LEVODOPA
     Indication: Parkinson^s disease
     Dosage: 1 CAPSULES (61.25-245 MG), EVERY 8HR
     Route: 048

REACTIONS (4)
  - Hospitalisation [Unknown]
  - Asthenia [Recovering/Resolving]
  - Gait inability [Recovering/Resolving]
  - Hypotension [Recovering/Resolving]
